FAERS Safety Report 12208103 (Version 1)
Quarter: 2016Q1

REPORT INFORMATION
  Report Type: Spontaneous
  Country: US (occurrence: None)
  Receive Date: 20160323
  Receipt Date: 20160323
  Transmission Date: 20160526
  Serious: Yes (Hospitalization)
  Sender: FDA-Public Use
  Company Number: None

PATIENT
  Age: 53 Year
  Sex: Female

DRUGS (9)
  1. ENOXAPARIN [Concomitant]
     Active Substance: ENOXAPARIN
  2. MORPHINE [Suspect]
     Active Substance: MORPHINE
     Indication: PAIN
     Dosage: 3MG/1MG/15MIN CONTINUOUS PCA
     Dates: start: 20160125, end: 20160126
  3. CYCLOBENZAPRINE [Concomitant]
     Active Substance: CYCLOBENZAPRINE
  4. DEXAMETHASONE. [Concomitant]
     Active Substance: DEXAMETHASONE
  5. MEGESTROL [Concomitant]
     Active Substance: MEGESTROL
  6. SENNA [Concomitant]
     Active Substance: SENNA LEAF\SENNOSIDES\SENNOSIDES A AND B
  7. DOCUSATE [Concomitant]
     Active Substance: DOCUSATE
  8. INSULIN ASPART [Concomitant]
     Active Substance: INSULIN ASPART
  9. POLYTHYLENE GLYCOL 3350 OTC [Concomitant]
     Active Substance: POLYETHYLENE GLYCOL 3500

REACTIONS (2)
  - Somnolence [None]
  - Disturbance in attention [None]

NARRATIVE: CASE EVENT DATE: 20160125
